FAERS Safety Report 25949693 (Version 1)
Quarter: 2025Q4

REPORT INFORMATION
  Report Type: Spontaneous
  Country: CA (occurrence: CA)
  Receive Date: 20251022
  Receipt Date: 20251022
  Transmission Date: 20260117
  Serious: Yes (Life-Threatening, Hospitalization, Other)
  Sender: BOEHRINGER INGELHEIM
  Company Number: CA-BoehringerIngelheim-2025-BI-102799

PATIENT
  Age: 78 Year
  Sex: Male

DRUGS (1)
  1. DABIGATRAN ETEXILATE MESYLATE [Suspect]
     Active Substance: DABIGATRAN ETEXILATE MESYLATE
     Indication: Product used for unknown indication

REACTIONS (5)
  - Thromboembolectomy [Recovering/Resolving]
  - Peripheral ischaemia [Recovering/Resolving]
  - Embolism [Recovering/Resolving]
  - Therapy interrupted [Recovering/Resolving]
  - Fasciotomy [Recovering/Resolving]
